FAERS Safety Report 8840527 (Version 2)
Quarter: 2015Q3

REPORT INFORMATION
  Report Type: Report from Study
  Country: US (occurrence: US)
  Receive Date: 20121015
  Receipt Date: 20150811
  Transmission Date: 20151125
  Serious: Yes (Other)
  Sender: FDA-Public Use
  Company Number: US-ROCHE-1115763

PATIENT
  Sex: Female
  Weight: 110.97 kg

DRUGS (24)
  1. BROMFED (BROMPHENIRAMINE MALEATE, PSEUDOEPHEDRINE HCL, DEXTROMETHORPHA [Concomitant]
     Route: 048
  2. NUTROPIN AQ [Suspect]
     Active Substance: SOMATROPIN
     Indication: GROWTH HORMONE DEFICIENCY
     Route: 042
  3. SPIRONOLACTONE. [Concomitant]
     Active Substance: SPIRONOLACTONE
     Route: 048
  4. PHENTERMINE. [Concomitant]
     Active Substance: PHENTERMINE
     Route: 048
  5. DYAZIDE [Concomitant]
     Active Substance: HYDROCHLOROTHIAZIDE\TRIAMTERENE
     Dosage: 1 CAPSULE
     Route: 048
  6. NUTROPIN AQ [Suspect]
     Active Substance: SOMATROPIN
     Dosage: 0.18 CC
     Route: 058
  7. NUTROPIN AQ [Suspect]
     Active Substance: SOMATROPIN
     Indication: DWARFISM
     Dosage: 0.006MG/KG/DAY
     Route: 042
  8. LEVOXYL [Concomitant]
     Active Substance: LEVOTHYROXINE SODIUM
     Route: 048
  9. MECLIZINE [Concomitant]
     Active Substance: MECLIZINE\MECLIZINE HYDROCHLORIDE
     Route: 048
  10. DESYREL [Concomitant]
     Active Substance: TRAZODONE HYDROCHLORIDE
     Route: 048
  11. NASONEX [Concomitant]
     Active Substance: MOMETASONE FUROATE
     Route: 048
  12. PREVACID [Concomitant]
     Active Substance: LANSOPRAZOLE
     Route: 048
  13. NUTROPIN AQ [Suspect]
     Active Substance: SOMATROPIN
     Dosage: 0.20 CC
     Route: 058
  14. LEVOXYL [Concomitant]
     Active Substance: LEVOTHYROXINE SODIUM
     Route: 048
  15. ALEVE [Concomitant]
     Active Substance: NAPROXEN SODIUM
     Dosage: 2 TABLET
     Route: 048
  16. BELLERGAL [Concomitant]
     Active Substance: BELLADONNA\ERGOTAMINE TARTRATE\PHENOBARBITAL
     Route: 048
  17. LUVOX [Concomitant]
     Active Substance: FLUVOXAMINE MALEATE
     Dosage: IN EVENING
     Route: 048
  18. FERROUS SULFATE [Concomitant]
     Active Substance: FERROUS SULFATE\FERROUS SULFATE, DRIED
     Route: 048
  19. LUVOX [Concomitant]
     Active Substance: FLUVOXAMINE MALEATE
     Dosage: IN MORNING
     Route: 048
  20. IBUPROFEN. [Concomitant]
     Active Substance: IBUPROFEN
     Route: 048
  21. NUTROPIN AQ [Suspect]
     Active Substance: SOMATROPIN
     Dosage: 0.15 CC
     Route: 058
  22. ESTRATEST [Concomitant]
     Active Substance: ESTROGENS, ESTERIFIED\METHYLTESTOSTERONE
     Route: 048
  23. DESYREL [Concomitant]
     Active Substance: TRAZODONE HYDROCHLORIDE
     Route: 048
  24. ZOLOFT [Concomitant]
     Active Substance: SERTRALINE HYDROCHLORIDE
     Route: 048

REACTIONS (7)
  - Autoimmune thyroiditis [Unknown]
  - Fatigue [Unknown]
  - Fibromyalgia [Unknown]
  - Glucose tolerance impaired [Unknown]
  - Abdominal discomfort [Unknown]
  - Hyperlipidaemia [Unknown]
  - Obesity [Unknown]
